FAERS Safety Report 9456918 (Version 2)
Quarter: 2013Q3

REPORT INFORMATION
  Report Type: Spontaneous
  Country: JP (occurrence: JP)
  Receive Date: 20130813
  Receipt Date: 20130814
  Transmission Date: 20140515
  Serious: Yes (Hospitalization, Disabling, Other)
  Sender: FDA-Public Use
  Company Number: JP-009507513-1308JPN003418

PATIENT
  Age: 71 Year
  Sex: Male
  Weight: 36 kg

DRUGS (1)
  1. FOSAMAC TABLETS 35MG [Suspect]
     Indication: OSTEOPOROSIS
     Dosage: 35 MG, QD
     Route: 048

REACTIONS (2)
  - Jaw operation [Unknown]
  - Osteonecrosis of jaw [Recovering/Resolving]
